FAERS Safety Report 4932637-5 (Version None)
Quarter: 2006Q1

REPORT INFORMATION
  Report Type: 
  Country: None (occurrence: None)
  Receive Date: 20060301
  Receipt Date: 20060222
  Transmission Date: 20060701
  Serious: Yes (Hospitalization)
  Sender: FDA-Public Use
  Company Number: 805#1#2006-00009

PATIENT
  Age: 54 Year
  Sex: Male

DRUGS (3)
  1. ALPROSTADIL [Suspect]
     Indication: ATELECTASIS
     Dosage: 1.120 MCG INTRAVENOUS DRIP
     Route: 041
     Dates: start: 20051127, end: 20051228
  2. ALPROSTADIL [Suspect]
     Indication: PERIPHERAL VASCULAR DISORDER
     Dosage: 1.120 MCG INTRAVENOUS DRIP
     Route: 041
     Dates: start: 20051127, end: 20051228
  3. ALPROSTADIL [Suspect]
     Indication: PLEURAL EFFUSION
     Dosage: 1.120 MCG INTRAVENOUS DRIP
     Route: 041
     Dates: start: 20051127, end: 20051228

REACTIONS (2)
  - ATELECTASIS [None]
  - PLEURAL EFFUSION [None]
